FAERS Safety Report 20390071 (Version 1)
Quarter: 2022Q1

REPORT INFORMATION
  Report Type: Spontaneous
  Country: US (occurrence: US)
  Receive Date: 20220128
  Receipt Date: 20220128
  Transmission Date: 20220424
  Serious: No
  Sender: FDA-Public Use
  Company Number: US-AUROBINDO-AUR-APL-2020-061306

PATIENT
  Age: 19 Year
  Sex: Female
  Weight: 56.6 kg

DRUGS (1)
  1. LEVONORGESTREL [Suspect]
     Active Substance: LEVONORGESTREL
     Indication: Product used for unknown indication
     Dosage: TOOK ONE DOSE (ONE TIME USE PRODUCT)
     Route: 048
     Dates: start: 20201127, end: 20201127

REACTIONS (3)
  - Intermenstrual bleeding [Recovered/Resolved]
  - Breast tenderness [Recovered/Resolved]
  - Headache [Recovered/Resolved]

NARRATIVE: CASE EVENT DATE: 20201127
